FAERS Safety Report 8966775 (Version 2)
Quarter: 2012Q4

REPORT INFORMATION
  Report Type: 
  Country: RO (occurrence: RO)
  Receive Date: 20121217
  Receipt Date: 20121221
  Transmission Date: 20130627
  Serious: Yes (Other)
  Sender: FDA-Public Use
  Company Number: RO-JNJFOC-20121205943

PATIENT

DRUGS (3)
  1. PARACETAMOL [Suspect]
     Route: 065
  2. PARACETAMOL [Suspect]
     Indication: ANTIPYRESIS
     Route: 065
  3. IBUPROFEN [Suspect]
     Indication: ANTIPYRESIS
     Route: 065

REACTIONS (2)
  - Renal failure acute [Unknown]
  - Dehydration [Unknown]
